FAERS Safety Report 6819600-4 (Version None)
Quarter: 2010Q3

REPORT INFORMATION
  Report Type: 
  Country: None (occurrence: None)
  Receive Date: 20100701
  Receipt Date: 20091118
  Transmission Date: 20110219
  Serious: No
  Sender: FDA-Public Use
  Company Number: US-TEVA-215626USA

PATIENT
  Age: 64 Year
  Sex: Female

DRUGS (2)
  1. AZILECT [Suspect]
     Indication: PARKINSON'S DISEASE
     Dosage: START DOSE 0.5MG, INCREASED TO 1MG.
     Route: 048
  2. SINEMET [Suspect]
     Indication: PARKINSON'S DISEASE

REACTIONS (1)
  - WEIGHT DECREASED [None]
